FAERS Safety Report 18643083 (Version 1)
Quarter: 2020Q4

REPORT INFORMATION
  Report Type: Spontaneous
  Country: US (occurrence: US)
  Receive Date: 20201221
  Receipt Date: 20201221
  Transmission Date: 20210114
  Serious: Yes (Hospitalization)
  Sender: FDA-Public Use
  Company Number: US-TEVA-2020-US-1859383

PATIENT
  Sex: Male
  Weight: 81.19 kg

DRUGS (2)
  1. PROAIR HFA [Suspect]
     Active Substance: ALBUTEROL SULFATE
     Indication: ASTHMA
     Dosage: 2 PUFF THREE TIMES A DAY
     Route: 055
     Dates: start: 2000
  2. SYMBICORT [Concomitant]
     Active Substance: BUDESONIDE\FORMOTEROL FUMARATE DIHYDRATE
     Route: 065

REACTIONS (9)
  - Illness [Unknown]
  - Gait inability [Unknown]
  - Weight decreased [Unknown]
  - Product use in unapproved indication [Unknown]
  - Blood pressure abnormal [Unknown]
  - Peripheral swelling [Unknown]
  - Sepsis [Unknown]
  - Contusion [Unknown]
  - Road traffic accident [Unknown]

NARRATIVE: CASE EVENT DATE: 2018
